FAERS Safety Report 9888413 (Version 3)
Quarter: 2014Q2

REPORT INFORMATION
  Report Type: Spontaneous
  Country: US (occurrence: US)
  Receive Date: 20140211
  Receipt Date: 20140410
  Transmission Date: 20141212
  Serious: No
  Sender: FDA-Public Use
  Company Number: US-PFIZER INC-2014038949

PATIENT
  Age: 67 Year
  Sex: Female
  Weight: 76.64 kg

DRUGS (3)
  1. GABAPENTIN [Suspect]
     Indication: SPINAL CORD DISORDER
     Dosage: UNK
  2. GABAPENTIN [Suspect]
     Indication: TOXIC NEUROPATHY
  3. OXYCONTIN [Concomitant]
     Indication: PAIN
     Dosage: 10 MG, 2X/DAY

REACTIONS (3)
  - Off label use [Unknown]
  - Feeling abnormal [Unknown]
  - Drug intolerance [Unknown]
